FAERS Safety Report 24652511 (Version 1)
Quarter: 2024Q4

REPORT INFORMATION
  Report Type: Spontaneous
  Country: US (occurrence: None)
  Receive Date: 20241122
  Receipt Date: 20241122
  Transmission Date: 20250114
  Serious: Yes (Hospitalization)
  Sender: Public
  Company Number: None

PATIENT
  Age: 74 Year
  Sex: Female
  Weight: 85.3 kg

DRUGS (2)
  1. CARBOPLATIN [Suspect]
     Active Substance: CARBOPLATIN
  2. TAXOL [Suspect]
     Active Substance: PACLITAXEL

REACTIONS (7)
  - Headache [None]
  - Ventricular extrasystoles [None]
  - Bundle branch block right [None]
  - Diastolic dysfunction [None]
  - Aortic stenosis [None]
  - Tricuspid valve incompetence [None]
  - Deep vein thrombosis [None]

NARRATIVE: CASE EVENT DATE: 20241111
